FAERS Safety Report 15333208 (Version 4)
Quarter: 2018Q4

REPORT INFORMATION
  Report Type: Report from Study
  Country: FR (occurrence: FR)
  Receive Date: 20180830
  Receipt Date: 20181213
  Transmission Date: 20190204
  Serious: Yes (Death, Life-Threatening, Hospitalization, Other)
  Sender: FDA-Public Use
  Company Number: FR-ROCHE-2041315

PATIENT
  Age: 44 Year
  Sex: Male
  Weight: 88 kg

DRUGS (8)
  1. CARBOPLATINE [Suspect]
     Active Substance: CARBOPLATIN
     Indication: GERM CELL NEOPLASM
     Dosage: 4 AUC
     Route: 042
     Dates: start: 20171130, end: 20171204
  2. BEVACIZUMAB. [Suspect]
     Active Substance: BEVACIZUMAB
     Indication: GERM CELL NEOPLASM
     Route: 042
     Dates: start: 20171129, end: 20171129
  3. IFOSFAMIDE. [Suspect]
     Active Substance: IFOSFAMIDE
     Indication: GERM CELL NEOPLASM
     Route: 042
     Dates: start: 20171130, end: 20171204
  4. ETOPOSIDE. [Suspect]
     Active Substance: ETOPOSIDE
     Indication: GERM CELL NEOPLASM
     Route: 042
     Dates: start: 20171130, end: 20171204
  5. BLEOMYCIN [Concomitant]
     Active Substance: BLEOMYCIN SULFATE
     Route: 065
  6. TAXOL [Concomitant]
     Active Substance: PACLITAXEL
  7. CARDENSIEL [Concomitant]
     Active Substance: BISOPROLOL FUMARATE
     Dosage: 5 MG/DAY
     Route: 065
  8. CISPLATIN. [Concomitant]
     Active Substance: CISPLATIN

REACTIONS (11)
  - Respiratory failure [Fatal]
  - Haemorrhagic disorder [Fatal]
  - Gastrointestinal perforation [Fatal]
  - Septic shock [Fatal]
  - Acute kidney injury [Not Recovered/Not Resolved]
  - Cardiac arrest [Fatal]
  - Aplasia [Fatal]
  - Enterocolitis [Fatal]
  - Pneumonia pseudomonal [Not Recovered/Not Resolved]
  - Coma acidotic [Fatal]
  - Thrombocytopenia [Not Recovered/Not Resolved]

NARRATIVE: CASE EVENT DATE: 20171208
